FAERS Safety Report 9227912 (Version 1)
Quarter: 2013Q1

REPORT INFORMATION
  Report Type: Spontaneous
  Country: US (occurrence: None)
  Receive Date: 20121021
  Receipt Date: 20121021
  Transmission Date: 20140127
  Serious: Yes (Other)
  Sender: FDA-Public Use
  Company Number: 1000037193

PATIENT
  Age: 30 Year
  Sex: Male

DRUGS (3)
  1. LEXAPRO [Suspect]
     Indication: DEPRESSION
     Dosage: 20 MG ( 20 MG, 1 IN 1 D), ORAL
     Route: 048
     Dates: start: 2010, end: 201207
  2. ABILIFY ( ARIPIPRAZOLE) ( ARIPIPRAZOLE) [Concomitant]
  3. TEGRETAL ( CARBAMAZEPINE) ( CARBAMAZEPINE) [Concomitant]

REACTIONS (1)
  - Priapism [None]
